FAERS Safety Report 4747584-1 (Version None)
Quarter: 2005Q3

REPORT INFORMATION
  Report Type: 
  Country: None (occurrence: None)
  Receive Date: 20050818
  Receipt Date: 20041012
  Transmission Date: 20060218
  Serious: No
  Sender: FDA-Public Use
  Company Number: US-BRISTOL-MYERS SQUIBB COMPANY-12730008

PATIENT
  Age: 75 Year
  Sex: Female
  Weight: 93 kg

DRUGS (4)
  1. TEQUIN [Suspect]
     Indication: PNEUMONIA PRIMARY ATYPICAL
     Route: 048
     Dates: start: 20040101, end: 20040101
  2. ZIAC [Interacting]
     Dosage: ^FOR YEARS^
     Dates: end: 20040601
  3. GLUCOTROL [Concomitant]
     Dosage: ^FOR YEARS^
  4. ACTOSE [Concomitant]
     Dosage: ^FOR YEARS^-DOSAGE INCREASED TO 45 MG DAILY SINCE STARTING PREDNISONE IN JUN-2004.

REACTIONS (3)
  - DRUG INTERACTION [None]
  - PAIN IN EXTREMITY [None]
  - RASH [None]
